FAERS Safety Report 9275320 (Version 1)
Quarter: 2013Q2

REPORT INFORMATION
  Report Type: Spontaneous
  Country: US (occurrence: None)
  Receive Date: 20130430
  Receipt Date: 20130430
  Transmission Date: 20140414
  Serious: Yes (Other)
  Sender: FDA-Public Use
  Company Number: TCI2013A02307

PATIENT
  Age: 66 Year
  Sex: Female

DRUGS (6)
  1. ROZEREM [Suspect]
     Indication: INSOMNIA
     Dosage: 8 MG (8 MG, 1 IN 1 D) 35 DAYS
     Route: 048
     Dates: start: 20130227, end: 20130403
  2. CRESTOR ( ROSUVASTATIN CALCIUM) [Concomitant]
  3. PARIET(RABEPRAZOLE SODIUM) [Concomitant]
  4. DOGMATYL(SULPIRIDE) [Concomitant]
  5. PAXIL CR(PAROXETINE HYDROCHLORIDE) [Concomitant]
  6. DEPAS(ETIZOLAM) [Concomitant]

REACTIONS (1)
  - Rash generalised [None]
